FAERS Safety Report 18635401 (Version 1)
Quarter: 2020Q4

REPORT INFORMATION
  Report Type: Spontaneous
  Country: US (occurrence: US)
  Receive Date: 20201218
  Receipt Date: 20201218
  Transmission Date: 20210114
  Serious: No
  Sender: FDA-Public Use
  Company Number: US-THERAPEUTICSMD-2020TMD04383

PATIENT
  Sex: Female
  Weight: 58.96 kg

DRUGS (3)
  1. UNSPECIFIED MEDICATION FOR CHRONIC LEUKEMIA [Concomitant]
  2. IMVEXXY [Suspect]
     Active Substance: ESTRADIOL
     Indication: VULVOVAGINAL DISCOMFORT
     Dosage: 10 ?G, 2X/WEEK
     Route: 067
     Dates: start: 202003
  3. IMVEXXY [Suspect]
     Active Substance: ESTRADIOL
     Indication: VULVOVAGINAL DRYNESS

REACTIONS (3)
  - Vaginal odour [Not Recovered/Not Resolved]
  - Off label use [Not Recovered/Not Resolved]
  - Bacterial vaginosis [Recovered/Resolved]

NARRATIVE: CASE EVENT DATE: 2020
